FAERS Safety Report 20102676 (Version 2)
Quarter: 2023Q1

REPORT INFORMATION
  Report Type: Spontaneous
  Country: US (occurrence: US)
  Receive Date: 20211123
  Receipt Date: 20230202
  Transmission Date: 20230417
  Serious: Yes (Other)
  Sender: FDA-Public Use
  Company Number: US-PARI RESPIRATORY EQUIPMENT, INC.-2021PAR00060

PATIENT
  Age: 0 Year
  Sex: Female
  Weight: 11.293 kg

DRUGS (7)
  1. KITABIS PAK [Suspect]
     Active Substance: TOBRAMYCIN
     Indication: Bacterial disease carrier
     Dosage: 75 MG (1.25 ML) VIA NEBULIZER, 2X/DAY (EVERY 12 HOURS) FOR 28 DAYS ON AND 28 DAYS OFF
  2. KITABIS PAK [Suspect]
     Active Substance: TOBRAMYCIN
     Dosage: 75 (1.25 ML) VIA NEBULIZER, EVERY 12 HOURS, 28 DAYS ON AND 28 DAYS OFF
  3. PREVACID RAPID DR [Concomitant]
  4. ALBUTEROL SULFATE [Concomitant]
     Active Substance: ALBUTEROL SULFATE
  5. CUVPOSA [Concomitant]
     Active Substance: GLYCOPYRROLATE
  6. DIURIL [Concomitant]
     Active Substance: CHLOROTHIAZIDE
  7. ENALAPRIL MALEATE [Concomitant]
     Active Substance: ENALAPRIL MALEATE

REACTIONS (3)
  - Gastroenterostomy [Recovered/Resolved]
  - Complication associated with device [Unknown]
  - Off label use [Unknown]

NARRATIVE: CASE EVENT DATE: 20211106
